FAERS Safety Report 14672015 (Version 2)
Quarter: 2018Q2

REPORT INFORMATION
  Report Type: Other
  Country: CA (occurrence: CA)
  Receive Date: 20180323
  Receipt Date: 20180422
  Transmission Date: 20180711
  Serious: Yes (Other)
  Sender: FDA-Public Use
  Company Number: CA-APOTEX-2018AP008112

PATIENT
  Age: 53 Year
  Sex: Male

DRUGS (1)
  1. SALBUTAMOL [Suspect]
     Active Substance: ALBUTEROL
     Indication: PRODUCT USED FOR UNKNOWN INDICATION
     Dosage: UNK
     Route: 065

REACTIONS (5)
  - Malaise [Recovered/Resolved]
  - Injury [Recovered/Resolved]
  - Influenza [Recovered/Resolved]
  - Respiratory disorder [Recovered/Resolved]
  - Pyrexia [Recovered/Resolved]
